FAERS Safety Report 11319648 (Version 1)
Quarter: 2015Q3

REPORT INFORMATION
  Report Type: Spontaneous
  Country: US (occurrence: None)
  Receive Date: 20150728
  Receipt Date: 20150728
  Transmission Date: 20151125
  Serious: Yes (Life-Threatening, Hospitalization, Disabling, Other)
  Sender: FDA-Public Use
  Company Number: None

PATIENT
  Weight: 49.9 kg

DRUGS (11)
  1. ADDERALL [Suspect]
     Active Substance: AMPHETAMINE ASPARTATE\AMPHETAMINE SULFATE\DEXTROAMPHETAMINE SACCHARATE\DEXTROAMPHETAMINE SULFATE
  2. RISPERIDONE. [Suspect]
     Active Substance: RISPERIDONE
  3. WELLBUTRIN [Suspect]
     Active Substance: BUPROPION HYDROCHLORIDE
  4. TRAZODONE [Suspect]
     Active Substance: TRAZODONE HYDROCHLORIDE
  5. AMBIEN [Suspect]
     Active Substance: ZOLPIDEM TARTRATE
     Indication: MENTAL DISORDER
     Route: 048
     Dates: end: 20140717
  6. AMBIEN [Suspect]
     Active Substance: ZOLPIDEM TARTRATE
     Indication: SCHIZOPHRENIA
     Route: 048
     Dates: end: 20140717
  7. AMBIEN [Suspect]
     Active Substance: ZOLPIDEM TARTRATE
     Indication: ATTENTION DEFICIT/HYPERACTIVITY DISORDER
     Route: 048
     Dates: end: 20140717
  8. BENZATROPINE [Suspect]
     Active Substance: BENZTROPINE
  9. COGENTIN [Suspect]
     Active Substance: BENZTROPINE MESYLATE
  10. AMBIEN [Suspect]
     Active Substance: ZOLPIDEM TARTRATE
     Indication: BIPOLAR DISORDER
     Route: 048
     Dates: end: 20140717
  11. AMBIEN [Suspect]
     Active Substance: ZOLPIDEM TARTRATE
     Indication: DEPRESSION
     Route: 048
     Dates: end: 20140717

REACTIONS (9)
  - Visual impairment [None]
  - Drug interaction [None]
  - Seizure [None]
  - Head injury [None]
  - Hearing impaired [None]
  - Injury [None]
  - Suicidal ideation [None]
  - Mental status changes [None]
  - Hallucination [None]
